FAERS Safety Report 22679969 (Version 4)
Quarter: 2024Q1

REPORT INFORMATION
  Report Type: Spontaneous
  Country: CO (occurrence: CO)
  Receive Date: 20230707
  Receipt Date: 20240223
  Transmission Date: 20240410
  Serious: Yes (Other)
  Sender: FDA-Public Use
  Company Number: CO-HORIZON THERAPEUTICS-HZN-2023-004842

PATIENT

DRUGS (2)
  1. INTERFERON GAMMA-1B [Suspect]
     Active Substance: INTERFERON GAMMA-1B
     Indication: Lymph node tuberculosis
     Dosage: 0.2 MG, QOD
     Route: 058
     Dates: start: 20201223, end: 20230421
  2. INTERFERON GAMMA-1B [Suspect]
     Active Substance: INTERFERON GAMMA-1B
     Indication: Primary immunodeficiency syndrome

REACTIONS (3)
  - Skin lesion [Recovered/Resolved]
  - Wound secretion [Recovered/Resolved]
  - Off label use [Unknown]

NARRATIVE: CASE EVENT DATE: 20230614
